FAERS Safety Report 23492953 (Version 3)
Quarter: 2024Q1

REPORT INFORMATION
  Report Type: Spontaneous
  Country: US (occurrence: US)
  Receive Date: 20240207
  Receipt Date: 20240301
  Transmission Date: 20240410
  Serious: Yes (Other)
  Sender: FDA-Public Use
  Company Number: US-ORGANON-O2402USA000531

PATIENT
  Age: 51 Year
  Sex: Female
  Weight: 71.202 kg

DRUGS (4)
  1. ASMANEX [Suspect]
     Active Substance: MOMETASONE FUROATE
     Indication: Hypersensitivity
     Dosage: 14 METERED-DOSE (TWO PUFFS TWICE DAILY)
     Dates: start: 20240122
  2. ASMANEX [Suspect]
     Active Substance: MOMETASONE FUROATE
     Indication: Asthma
  3. PREDNISONE [Concomitant]
     Active Substance: PREDNISONE
     Dosage: UNK
     Route: 065
  4. SYMBICORT [Concomitant]
     Active Substance: BUDESONIDE\FORMOTEROL FUMARATE DIHYDRATE
     Dosage: UNK
     Route: 065

REACTIONS (9)
  - Foot operation [Unknown]
  - Nasopharyngitis [Not Recovered/Not Resolved]
  - Calcinosis [Unknown]
  - Rhinorrhoea [Not Recovered/Not Resolved]
  - Weight increased [Unknown]
  - Device malfunction [Unknown]
  - Poor quality device used [Unknown]
  - Device breakage [Unknown]
  - Product use in unapproved indication [Unknown]

NARRATIVE: CASE EVENT DATE: 20240101
